FAERS Safety Report 12024444 (Version 1)
Quarter: 2016Q1

REPORT INFORMATION
  Report Type: Spontaneous
  Country: US (occurrence: US)
  Receive Date: 20160206
  Receipt Date: 20160206
  Transmission Date: 20160526
  Serious: No
  Sender: FDA-Public Use
  Company Number: US-SHIRE-US201601001

PATIENT
  Sex: Male
  Weight: 36.28 kg

DRUGS (1)
  1. VYVANSE [Suspect]
     Active Substance: LISDEXAMFETAMINE DIMESYLATE
     Indication: ATTENTION DEFICIT/HYPERACTIVITY DISORDER
     Dosage: 50 MG, UNKNOWN
     Route: 048
     Dates: start: 201511

REACTIONS (8)
  - Disturbance in social behaviour [Unknown]
  - Wrong technique in product usage process [Not Recovered/Not Resolved]
  - Mydriasis [Unknown]
  - Intentional underdose [Not Recovered/Not Resolved]
  - Fear [Unknown]
  - Drug effect decreased [Unknown]
  - Lethargy [Unknown]
  - Disturbance in attention [Unknown]
